FAERS Safety Report 18134682 (Version 1)
Quarter: 2020Q3

REPORT INFORMATION
  Report Type: Report from Study
  Country: MX (occurrence: MX)
  Receive Date: 20200811
  Receipt Date: 20200811
  Transmission Date: 20201103
  Serious: Yes (Other)
  Sender: FDA-Public Use
  Company Number: MX-UCBSA-2020030346

PATIENT
  Sex: Male
  Weight: 68 kg

DRUGS (4)
  1. LAMOTRIGINE. [Concomitant]
     Active Substance: LAMOTRIGINE
     Indication: EPILEPSY
     Dosage: 100MG
  2. TOPIRAMATE. [Concomitant]
     Active Substance: TOPIRAMATE
     Indication: EPILEPSY
     Dosage: UNK
  3. BRIVARACETAM [Suspect]
     Active Substance: BRIVARACETAM
     Indication: EPILEPSY
     Dosage: 25 MILLIGRAM, ONCE DAILY (QD)
     Route: 048
     Dates: start: 2019, end: 2019
  4. MAGNESIUM VALPROATE [Concomitant]
     Active Substance: VALPROATE MAGNESIUM
     Indication: EPILEPSY
     Dosage: 600 MG

REACTIONS (3)
  - Off label use [Unknown]
  - Underdose [Unknown]
  - Dyspnoea [Recovered/Resolved]

NARRATIVE: CASE EVENT DATE: 2019
